FAERS Safety Report 13362929 (Version 1)
Quarter: 2017Q1

REPORT INFORMATION
  Report Type: Spontaneous
  Country: US (occurrence: US)
  Receive Date: 20170323
  Receipt Date: 20170323
  Transmission Date: 20170429
  Serious: Yes (Hospitalization, Other)
  Sender: FDA-Public Use
  Company Number: US-SA-2017SA047295

PATIENT
  Age: 88 Year
  Sex: Female

DRUGS (3)
  1. AMBIEN CR [Suspect]
     Active Substance: ZOLPIDEM TARTRATE
     Route: 065
  2. AMBRISENTAN [Suspect]
     Active Substance: AMBRISENTAN
     Route: 065
  3. WARFARIN [Concomitant]
     Active Substance: WARFARIN
     Route: 065

REACTIONS (7)
  - Abnormal dreams [Unknown]
  - Fall [Unknown]
  - Somnambulism [Unknown]
  - Confusional state [Unknown]
  - Fatigue [Unknown]
  - Hip fracture [Unknown]
  - Poor quality sleep [Unknown]
